FAERS Safety Report 7710332-7 (Version None)
Quarter: 2011Q3

REPORT INFORMATION
  Report Type: 
  Country: None (occurrence: None)
  Receive Date: 20110810
  Receipt Date: 20110804
  Transmission Date: 20111222
  Serious: Yes (Other)
  Sender: FDA-Public Use
  Company Number: 2011029457

PATIENT
  Age: 12 Year
  Sex: Female

DRUGS (4)
  1. HIZENTRA [Suspect]
     Indication: IMMUNODEFICIENCY COMMON VARIABLE
     Dosage: 1 G 1X/WEEK
     Route: 058
     Dates: start: 20110301
  2. CLARITIN [Concomitant]
  3. ASMANEX TWISTHALER [Suspect]
     Indication: ASTHMA
     Dosage: INHALED 1 PUFF TWICE DAILY
     Route: 055
  4. ALBUTEROL [Concomitant]

REACTIONS (3)
  - OSTEOPENIA [None]
  - OPEN ANGLE GLAUCOMA [None]
  - BLOOD 1,25-DIHYDROXYCHOLECALCIFEROL INCREASED [None]
